FAERS Safety Report 5009726-2 (Version None)
Quarter: 2006Q2

REPORT INFORMATION
  Report Type: 
  Country: None (occurrence: None)
  Receive Date: 20060523
  Receipt Date: 20060523
  Transmission Date: 20061013
  Serious: Yes (Hospitalization)
  Sender: FDA-Public Use
  Company Number: None

PATIENT
  Age: 79 Year
  Sex: Male

DRUGS (1)
  1. COUMADIN [Suspect]
     Indication: CONGESTIVE CARDIOMYOPATHY
     Dosage: 5 MG DAILY  PO
     Route: 048

REACTIONS (7)
  - ASTHENIA [None]
  - DRUG TOXICITY [None]
  - FAECES DISCOLOURED [None]
  - FEELING ABNORMAL [None]
  - INTERNATIONAL NORMALISED RATIO INCREASED [None]
  - OCCULT BLOOD POSITIVE [None]
  - UPPER GASTROINTESTINAL HAEMORRHAGE [None]
